FAERS Safety Report 24338325 (Version 1)
Quarter: 2024Q3

REPORT INFORMATION
  Report Type: Report from Study
  Country: CL (occurrence: CL)
  Receive Date: 20240919
  Receipt Date: 20240919
  Transmission Date: 20241016
  Serious: Yes (Life-Threatening)
  Sender: ROCHE
  Company Number: CL-ROCHE-10000079354

PATIENT
  Age: 57 Year
  Sex: Female

DRUGS (1)
  1. HERCEPTIN [Suspect]
     Active Substance: TRASTUZUMAB
     Indication: Breast cancer
     Dosage: THE EXACT START AND END DATE OF THE TREATMENT WITH SUBCUTANEOUS HERCEPTIN IS UNKNOWN. 18 CYCLES.
     Route: 058

REACTIONS (2)
  - Metastases to bone [Not Recovered/Not Resolved]
  - Metastases to lung [Not Recovered/Not Resolved]

NARRATIVE: CASE EVENT DATE: 20240304
